FAERS Safety Report 4457149-7 (Version None)
Quarter: 2004Q3

REPORT INFORMATION
  Report Type: 
  Country: None (occurrence: None)
  Receive Date: 20040825
  Receipt Date: 20040726
  Transmission Date: 20050211
  Serious: No
  Sender: FDA-Public Use
  Company Number: 208150

PATIENT
  Age: 20 Year
  Sex: Female
  Weight: 65.8 kg

DRUGS (2)
  1. RAPTIVA [Suspect]
     Indication: PSORIASIS
     Dosage: 0.8ML, 1/WEEK, SUBCUTANEOUS
     Route: 058
     Dates: start: 20040401
  2. NORCO (ACETAMINOPHEN, HYDROCODINE BITARTRATE) [Concomitant]

REACTIONS (2)
  - HEADACHE [None]
  - PHARYNGOLARYNGEAL PAIN [None]
